FAERS Safety Report 21860105 (Version 1)
Quarter: 2023Q1

REPORT INFORMATION
  Report Type: Report from Study
  Country: KR (occurrence: KR)
  Receive Date: 20230113
  Receipt Date: 20230113
  Transmission Date: 20230418
  Serious: Yes (Hospitalization)
  Sender: FDA-Public Use
  Company Number: KR-PFIZER INC-PV202300005891

PATIENT
  Age: 70 Year
  Sex: Female
  Weight: 60 kg

DRUGS (7)
  1. DACOMITINIB [Suspect]
     Active Substance: DACOMITINIB
     Indication: Non-small cell lung cancer
     Dosage: 45 MG, 1X/DAY
     Route: 048
     Dates: start: 20220715, end: 20220724
  2. DACOMITINIB [Suspect]
     Active Substance: DACOMITINIB
     Dosage: 45 MG, 1X/DAY
     Route: 048
     Dates: start: 20220805, end: 20221006
  3. DACOMITINIB [Suspect]
     Active Substance: DACOMITINIB
     Dosage: 30 MG, 1X/DAY
     Route: 048
     Dates: start: 20221012, end: 20221103
  4. DACOMITINIB [Suspect]
     Active Substance: DACOMITINIB
     Dosage: 30 MG, ALTERNATE DAY, QOD (EVERY OTHER DAY)
     Route: 048
     Dates: start: 20221104, end: 20221201
  5. DUKARB [Concomitant]
     Indication: Hypertension
     Dosage: UNK
     Route: 048
     Dates: start: 20220819
  6. CLOVONS [Concomitant]
     Indication: Cerebrovascular accident
     Dosage: UNK
     Route: 048
     Dates: start: 20220819
  7. LETOPRA [Concomitant]
     Indication: Cerebrovascular accident
     Dosage: UNK
     Route: 048
     Dates: start: 20220819

REACTIONS (1)
  - Pneumonia [Recovered/Resolved]

NARRATIVE: CASE EVENT DATE: 20221130
